FAERS Safety Report 8996977 (Version 4)
Quarter: 2014Q1

REPORT INFORMATION
  Report Type: Report from Study
  Country: US (occurrence: US)
  Receive Date: 20130104
  Receipt Date: 20140327
  Transmission Date: 20141002
  Serious: Yes (Other)
  Sender: FDA-Public Use
  Company Number: US-ELI_LILLY_AND_COMPANY-US201211008588

PATIENT
  Age: 91 Year
  Sex: Male
  Weight: 59.37 kg

DRUGS (2)
  1. TERIPARATIDE [Suspect]
     Indication: SENILE OSTEOPOROSIS
     Dosage: 20 UG, QD
     Route: 058
     Dates: start: 20121125
  2. TERIPARATIDE [Suspect]
     Dosage: 20 UG, QD
     Route: 058

REACTIONS (5)
  - Spinal fracture [Unknown]
  - Injection site bruising [Recovered/Resolved]
  - Muscle spasms [Recovering/Resolving]
  - Injection site haemorrhage [Unknown]
  - Injection site pain [Unknown]
